FAERS Safety Report 7885035-9 (Version None)
Quarter: 2011Q4

REPORT INFORMATION
  Report Type: 
  Country: None (occurrence: None)
  Receive Date: 20111102
  Receipt Date: 20111024
  Transmission Date: 20120403
  Serious: Yes (Other)
  Sender: FDA-Public Use
  Company Number: US-JNJFOC-20111010896

PATIENT
  Sex: Female
  Weight: 64.86 kg

DRUGS (2)
  1. DIOVAN [Concomitant]
     Indication: HYPERTENSION
  2. REMICADE [Suspect]
     Indication: PSORIASIS
     Route: 042
     Dates: start: 20080101

REACTIONS (1)
  - GOUT [None]
